FAERS Safety Report 24190690 (Version 1)
Quarter: 2024Q3

REPORT INFORMATION
  Report Type: Spontaneous
  Country: NL (occurrence: None)
  Receive Date: 20240808
  Receipt Date: 20240808
  Transmission Date: 20241017
  Serious: Yes (Hospitalization, Other)
  Sender: ASTRAZENECA
  Company Number: 2024A178748

PATIENT
  Age: 68 Year
  Sex: Male
  Weight: 91.2 kg

DRUGS (5)
  1. OMEPRAZOLE [Suspect]
     Active Substance: OMEPRAZOLE
     Indication: Dyspepsia
     Dosage: 1X PER DAY 1 PIECE
     Dates: start: 20240624, end: 20240711
  2. PREDNISOLONE [Concomitant]
     Active Substance: PREDNISOLONE
  3. SOLIFENACINE/TAMSULOSINE [Concomitant]
     Dosage: 6/0.4MG
  4. PRAMIPEXOLE [Concomitant]
     Active Substance: PRAMIPEXOLE\PRAMIPEXOLE DIHYDROCHLORIDE
     Dosage: 0.125MG (0.088MG BASE)
  5. ACETAMINOPHEN [Concomitant]
     Active Substance: ACETAMINOPHEN
     Dosage: 1000 MILLIGRAM

REACTIONS (2)
  - Tubulointerstitial nephritis [Recovering/Resolving]
  - Acute kidney injury [Unknown]
